FAERS Safety Report 21158871 (Version 2)
Quarter: 2023Q1

REPORT INFORMATION
  Report Type: Spontaneous
  Country: US (occurrence: US)
  Receive Date: 20220802
  Receipt Date: 20230208
  Transmission Date: 20230418
  Serious: No
  Sender: FDA-Public Use
  Company Number: US-BRISTOL-MYERS SQUIBB COMPANY-2022-082498

PATIENT
  Age: 86 Year
  Sex: Female
  Weight: 64.41 kg

DRUGS (2)
  1. REVLIMID [Suspect]
     Active Substance: LENALIDOMIDE
     Indication: Plasma cell myeloma
     Dosage: 5 MILLIGRAM 21 D, THEN 7 D OFF
     Route: 048
     Dates: start: 20220510
  2. REVLIMID [Suspect]
     Active Substance: LENALIDOMIDE
     Dosage: 10 MILLIGRAM 3W ON, 1W OFF
     Route: 048

REACTIONS (1)
  - Diarrhoea [Unknown]
